FAERS Safety Report 19220222 (Version 18)
Quarter: 2022Q1

REPORT INFORMATION
  Report Type: Spontaneous
  Country: US (occurrence: US)
  Receive Date: 20210506
  Receipt Date: 20220116
  Transmission Date: 20220423
  Serious: Yes (Hospitalization, Other)
  Sender: FDA-Public Use
  Company Number: US-SUN PHARMACEUTICAL INDUSTRIES LTD-2021R1-291732

PATIENT
  Sex: Female
  Weight: 101.13 kg

DRUGS (11)
  1. EPOPROSTENOL [Suspect]
     Active Substance: EPOPROSTENOL
     Indication: Pulmonary arterial hypertension
     Dosage: 31 NG PER KG PER MINUTE
     Route: 042
     Dates: start: 20210322
  2. EPOPROSTENOL [Suspect]
     Active Substance: EPOPROSTENOL
     Dosage: 31 NG PER KG PER MINUTE
     Route: 042
     Dates: start: 20190514
  3. EPOPROSTENOL [Suspect]
     Active Substance: EPOPROSTENOL
     Dosage: 31 NG PER KG PER MINUTE
     Route: 042
     Dates: start: 20210322
  4. EPOPROSTENOL [Suspect]
     Active Substance: EPOPROSTENOL
     Dosage: 31 NG PER KG PER MINUTE
     Route: 042
     Dates: start: 20210614
  5. EPOPROSTENOL [Suspect]
     Active Substance: EPOPROSTENOL
     Dosage: 31 NG PER KG PER MINUTE
     Route: 042
     Dates: start: 20210322
  6. EPOPROSTENOL [Suspect]
     Active Substance: EPOPROSTENOL
     Dosage: 31 NG PER KG PER MINUTE
     Route: 042
     Dates: start: 20210614
  7. EPOPROSTENOL [Suspect]
     Active Substance: EPOPROSTENOL
     Dosage: 31 NG PER KG PER MINUTE
     Route: 042
     Dates: start: 20210614
  8. EPOPROSTENOL [Suspect]
     Active Substance: EPOPROSTENOL
     Dosage: 32 NG PER KG PER MINUTE
     Route: 042
     Dates: start: 20210614
  9. EPOPROSTENOL [Suspect]
     Active Substance: EPOPROSTENOL
     Dosage: 31 NG PER KG PER MINUTE
     Route: 042
     Dates: start: 20210322
  10. EPOPROSTENOL [Suspect]
     Active Substance: EPOPROSTENOL
     Indication: Pulmonary arterial hypertension
     Dosage: 32 NG/KG/MIN CONTINUOUS
     Route: 042
     Dates: start: 20210322
  11. SILDENAFIL CITRATE [Concomitant]
     Active Substance: SILDENAFIL CITRATE
     Indication: Product used for unknown indication
     Route: 065

REACTIONS (23)
  - Central venous catheterisation [Unknown]
  - Upper gastrointestinal haemorrhage [Unknown]
  - Condition aggravated [Unknown]
  - Cardiac failure [Unknown]
  - Drug ineffective [Unknown]
  - Oxygen saturation decreased [Unknown]
  - Device malfunction [Unknown]
  - Haematemesis [Unknown]
  - Fluid retention [Unknown]
  - Hypervolaemia [Unknown]
  - Renal failure [Unknown]
  - Mood altered [Unknown]
  - Cardiac failure chronic [Unknown]
  - Haemoglobin decreased [Unknown]
  - Cardiac failure [Unknown]
  - Infection [Unknown]
  - Hallucination [Unknown]
  - Asthenia [Unknown]
  - Fatigue [Unknown]
  - Device occlusion [Unknown]
  - Bradyphrenia [Unknown]
  - Complication associated with device [Unknown]
  - Product dose omission issue [Unknown]

NARRATIVE: CASE EVENT DATE: 20210101
